FAERS Safety Report 12654147 (Version 1)
Quarter: 2016Q3

REPORT INFORMATION
  Report Type: Spontaneous
  Country: US (occurrence: None)
  Receive Date: 20160815
  Receipt Date: 20160815
  Transmission Date: 20161109
  Serious: No
  Sender: FDA-Public Use
  Company Number: None

PATIENT
  Age: 55 Year
  Sex: Female
  Weight: 88 kg

DRUGS (5)
  1. EMBEDA [Concomitant]
     Active Substance: MORPHINE SULFATE\NALTREXONE HYDROCHLORIDE
  2. VALIUM [Concomitant]
     Active Substance: DIAZEPAM
  3. LISINOPRIL GENERIC FOR PRINIVL, 5 MG [Suspect]
     Active Substance: LISINOPRIL
     Indication: HYPERTENSION
     Route: 048
     Dates: start: 20160810, end: 20160811
  4. BENADRYL [Concomitant]
     Active Substance: DIPHENHYDRAMINE HYDROCHLORIDE
  5. NEURTION [Concomitant]

REACTIONS (7)
  - Abdominal pain upper [None]
  - Rhinorrhoea [None]
  - Hyperhidrosis [None]
  - Back pain [None]
  - Cold sweat [None]
  - Headache [None]
  - Chills [None]

NARRATIVE: CASE EVENT DATE: 20160810
